FAERS Safety Report 8021175-1 (Version None)
Quarter: 2011Q4

REPORT INFORMATION
  Report Type: 
  Country: None (occurrence: None)
  Receive Date: 20111229
  Receipt Date: 20110802
  Transmission Date: 20120403
  Serious: Yes (Other)
  Sender: FDA-Public Use
  Company Number: ALB-003-11-PT

PATIENT
  Age: 56 Year
  Sex: Male

DRUGS (1)
  1. ALBUMIN (HUMAN) [Suspect]
     Indication: NEPHROTIC SYNDROME
     Dosage: 90 G - 1 X 1 / D, INTRAVENOUS (NOT OTHERWISE SPECIFIED)
     Route: 042
     Dates: start: 20110608, end: 20110608

REACTIONS (6)
  - HYPOXIA [None]
  - HYPERTENSIVE CRISIS [None]
  - RESPIRATORY ACIDOSIS [None]
  - METABOLIC ACIDOSIS [None]
  - DYSPNOEA [None]
  - OEDEMA PERIPHERAL [None]
